FAERS Safety Report 7499718-6 (Version None)
Quarter: 2011Q2

REPORT INFORMATION
  Report Type: 
  Country: None (occurrence: None)
  Receive Date: 20110524
  Receipt Date: 20110516
  Transmission Date: 20111010
  Serious: Yes (Other)
  Sender: FDA-Public Use
  Company Number: ES-ROCHE-777310

PATIENT

DRUGS (4)
  1. CETUXIMAB [Suspect]
     Dosage: 1 HOUR INFUSION WEEKLY: MAINTENANCE
     Route: 042
  2. IRINOTECAN HYDROCHLORIDE [Suspect]
     Dosage: 180-200 MG/M2 ON DAY 1, EVERY 2 WEEKS
     Route: 042
  3. BEVACIZUMAB [Suspect]
     Dosage: ON DAY 1 EVERY 2 WEEKS
     Route: 065
  4. CETUXIMAB [Suspect]
     Dosage: 2 HOUR INFUSION, LOADING DOSE, ON DAY 1
     Route: 042

REACTIONS (15)
  - NEUTROPENIA [None]
  - NAUSEA [None]
  - DIARRHOEA [None]
  - ASTHENIA [None]
  - THROMBOCYTOPENIA [None]
  - ANAEMIA [None]
  - PARONYCHIA [None]
  - STOMATITIS [None]
  - HYPERTENSION [None]
  - HAEMORRHAGE [None]
  - INFUSION RELATED REACTION [None]
  - ALOPECIA [None]
  - DERMATITIS ACNEIFORM [None]
  - VOMITING [None]
  - HYPOMAGNESAEMIA [None]
